FAERS Safety Report 23903364 (Version 3)
Quarter: 2025Q4

REPORT INFORMATION
  Report Type: Report from Study
  Country: US (occurrence: US)
  Receive Date: 20240527
  Receipt Date: 20251216
  Transmission Date: 20260118
  Serious: Yes (Other)
  Sender: TAKEDA
  Company Number: US-TAKEDA-2024TUS051477

PATIENT
  Age: 65 Year
  Sex: Male

DRUGS (1)
  1. VEDOLIZUMAB [Suspect]
     Active Substance: VEDOLIZUMAB
     Indication: Colitis ulcerative
     Dosage: 300 MILLIGRAM

REACTIONS (12)
  - Colitis ulcerative [Unknown]
  - Skin cancer [Unknown]
  - Type 2 diabetes mellitus [Unknown]
  - Diverticulum intestinal [Unknown]
  - Iron deficiency [Unknown]
  - Hyperlipidaemia [Unknown]
  - Obesity [Unknown]
  - Essential hypertension [Unknown]
  - Lumbar spinal stenosis [Unknown]
  - Sleep apnoea syndrome [Unknown]
  - Colorectal adenoma [Unknown]
  - Inappropriate schedule of product administration [Unknown]
